FAERS Safety Report 7931536-4 (Version None)
Quarter: 2011Q4

REPORT INFORMATION
  Report Type: 
  Country: None (occurrence: None)
  Receive Date: 20111121
  Receipt Date: 20111121
  Transmission Date: 20120403
  Serious: Yes (Other)
  Sender: FDA-Public Use
  Company Number: None

PATIENT
  Age: 45 Year
  Sex: Female
  Weight: 74.842 kg

DRUGS (1)
  1. REMICADE [Suspect]

REACTIONS (8)
  - ARTHRALGIA [None]
  - LOSS OF CONSCIOUSNESS [None]
  - AUTOIMMUNE HEPATITIS [None]
  - ALANINE AMINOTRANSFERASE INCREASED [None]
  - ALOPECIA [None]
  - PAIN [None]
  - SERUM SICKNESS [None]
  - RHEUMATOID ARTHRITIS [None]
